FAERS Safety Report 6962240-7 (Version None)
Quarter: 2010Q3

REPORT INFORMATION
  Report Type: 
  Country: None (occurrence: None)
  Receive Date: 20100902
  Receipt Date: 20100827
  Transmission Date: 20110219
  Serious: Yes (Other)
  Sender: FDA-Public Use
  Company Number: US-ASTRAZENECA-2007UW27644

PATIENT
  Age: 614 Month
  Sex: Female
  Weight: 74.8 kg

DRUGS (9)
  1. SEROQUEL [Suspect]
     Indication: ANXIETY
     Dosage: 100 MG-200 MG DAILY
     Route: 048
     Dates: start: 20030807
  2. SEROQUEL [Suspect]
     Indication: DEPRESSION
     Dosage: 100 MG-200 MG DAILY
     Route: 048
     Dates: start: 20030807
  3. SEROQUEL [Suspect]
     Indication: SCHIZOPHRENIA
     Dosage: 100 MG-200 MG DAILY
     Route: 048
     Dates: start: 20030807
  4. SEROQUEL [Suspect]
     Route: 048
     Dates: start: 20031101, end: 20040101
  5. SEROQUEL [Suspect]
     Route: 048
     Dates: start: 20031101, end: 20040101
  6. SEROQUEL [Suspect]
     Route: 048
     Dates: start: 20031101, end: 20040101
  7. SEROQUEL [Suspect]
     Route: 048
     Dates: start: 20040301, end: 20061201
  8. SEROQUEL [Suspect]
     Route: 048
     Dates: start: 20040301, end: 20061201
  9. SEROQUEL [Suspect]
     Route: 048
     Dates: start: 20040301, end: 20061201

REACTIONS (9)
  - BLOOD CHOLESTEROL INCREASED [None]
  - CARDIAC DISORDER [None]
  - CHEST PAIN [None]
  - DIABETIC COMPLICATION [None]
  - DYSPNOEA [None]
  - HYPERGLYCAEMIA [None]
  - HYPERLIPIDAEMIA [None]
  - MALAISE [None]
  - TYPE 2 DIABETES MELLITUS [None]
